FAERS Safety Report 23267814 (Version 1)
Quarter: 2023Q4

REPORT INFORMATION
  Report Type: Spontaneous
  Country: CA (occurrence: None)
  Receive Date: 20231206
  Receipt Date: 20231206
  Transmission Date: 20240110
  Serious: Yes (Hospitalization)
  Sender: FDA-Public Use
  Company Number: CA-INFO-20230239

PATIENT
  Age: 7 Decade
  Sex: Female

DRUGS (8)
  1. FLUCONAZOLE [Suspect]
     Active Substance: FLUCONAZOLE
     Indication: Disseminated cryptococcosis
  2. DEXAMETHASONE [Concomitant]
     Active Substance: DEXAMETHASONE
     Dosage: AT A STARTING DOSE OF 16 MG DAILY AND AT A DOSE OF 1.5 MG EVERY OTHER DAY BY THE TIME OF ADMISSIO...
  3. ONDANSETRON [Concomitant]
     Active Substance: ONDANSETRON
  4. PREGABALIN [Concomitant]
     Active Substance: PREGABALIN
  5. LEVOTHYROXINE [Concomitant]
     Active Substance: LEVOTHYROXINE
  6. ROSUVASTATIN [Concomitant]
     Active Substance: ROSUVASTATIN
  7. PANTOPRAZOLE [Concomitant]
     Active Substance: PANTOPRAZOLE
  8. CALCIUM CARBONATE [Concomitant]
     Active Substance: CALCIUM CARBONATE

REACTIONS (3)
  - Acute kidney injury [Recovering/Resolving]
  - Nausea [Unknown]
  - Off label use [Unknown]
